FAERS Safety Report 5092354-0 (Version None)
Quarter: 2006Q3

REPORT INFORMATION
  Report Type: 
  Country: None (occurrence: None)
  Receive Date: 20060825
  Receipt Date: 20060807
  Transmission Date: 20061208
  Serious: Yes (Hospitalization)
  Sender: FDA-Public Use
  Company Number: US200608002294

PATIENT
  Age: 69 Year
  Sex: Female
  Weight: 61.2 kg

DRUGS (2)
  1. ZYPREXA [Suspect]
     Dosage: 5 MG, ORAL
     Route: 048
     Dates: start: 20030302, end: 20040329
  2. PREDNISONE TAB [Concomitant]

REACTIONS (9)
  - CATARACT [None]
  - CHEST PAIN [None]
  - CONVULSION [None]
  - DIABETES MELLITUS [None]
  - DYSPNOEA [None]
  - FATIGUE [None]
  - PYELONEPHRITIS [None]
  - RETINAL OPERATION [None]
  - STRABISMUS [None]
